FAERS Safety Report 8562434-3 (Version None)
Quarter: 2012Q3

REPORT INFORMATION
  Report Type: 
  Country: None (occurrence: None)
  Receive Date: 20120802
  Receipt Date: 20120706
  Transmission Date: 20120928
  Serious: No
  Sender: FDA-Public Use
  Company Number: US-AMGEN-USASP2011015793

PATIENT
  Age: 39 Year
  Sex: Female
  Weight: 163.27 kg

DRUGS (3)
  1. LEVOTHYROXINE SODIUM [Concomitant]
     Dosage: UNK
     Dates: start: 20090101
  2. ENBREL [Suspect]
     Indication: PSORIASIS
     Dosage: 25 MG, 2 TIMES/WK
     Dates: start: 20110315, end: 20120201
  3. BUMEX [Concomitant]
     Dosage: UNK
     Dates: start: 20070101

REACTIONS (4)
  - DRUG EFFECT DECREASED [None]
  - INJECTION SITE DISCOLOURATION [None]
  - ECCHYMOSIS [None]
  - WHITE BLOOD CELL COUNT INCREASED [None]
